FAERS Safety Report 11540484 (Version 1)
Quarter: 2015Q3

REPORT INFORMATION
  Report Type: Spontaneous
  Country: US (occurrence: US)
  Receive Date: 20150923
  Receipt Date: 20150923
  Transmission Date: 20151125
  Serious: No
  Sender: FDA-Public Use
  Company Number: US-BEH-2015047787

PATIENT
  Age: 46 Year
  Sex: Female
  Weight: 117 kg

DRUGS (39)
  1. PREDNISONE. [Concomitant]
     Active Substance: PREDNISONE
  2. ZANTAC [Concomitant]
     Active Substance: RANITIDINE HYDROCHLORIDE
  3. VENTOLIN [Concomitant]
     Active Substance: ALBUTEROL SULFATE
  4. BENICAR [Concomitant]
     Active Substance: OLMESARTAN MEDOXOMIL
  5. ACETAMINOPHEN. [Concomitant]
     Active Substance: ACETAMINOPHEN
  6. NORMAL SALINE [Concomitant]
     Active Substance: SODIUM CHLORIDE
  7. ALPRAZOLAM. [Concomitant]
     Active Substance: ALPRAZOLAM
  8. LOPID [Concomitant]
     Active Substance: GEMFIBROZIL
  9. CETIRIZINE [Concomitant]
     Active Substance: CETIRIZINE HYDROCHLORIDE
  10. KLOR-CON [Concomitant]
     Active Substance: POTASSIUM CHLORIDE
  11. PROZAC [Concomitant]
     Active Substance: FLUOXETINE HYDROCHLORIDE
  12. METAMUCIL [Concomitant]
     Active Substance: PLANTAGO SEED
  13. COMPLETE MULTIVITAMIN [Concomitant]
     Active Substance: VITAMINS
  14. PREDNISONE. [Concomitant]
     Active Substance: PREDNISONE
  15. FLONASE [Concomitant]
     Active Substance: FLUTICASONE PROPIONATE
  16. NYQUIL D [Concomitant]
  17. PROMETHAZINE [Concomitant]
     Active Substance: PROMETHAZINE\PROMETHAZINE HYDROCHLORIDE
  18. ZOFRAN [Concomitant]
     Active Substance: ONDANSETRON HYDROCHLORIDE
  19. NIACIN. [Concomitant]
     Active Substance: NIACIN
  20. DIPHENHYDRAMINE. [Concomitant]
     Active Substance: DIPHENHYDRAMINE
  21. LIDOCAINE/PRILOCAINE [Concomitant]
  22. BACTROBAN [Concomitant]
     Active Substance: MUPIROCIN\MUPIROCIN CALCIUM
  23. FEXOFENADINE [Concomitant]
     Active Substance: FEXOFENADINE\FEXOFENADINE HYDROCHLORIDE
  24. BIOTIN [Concomitant]
     Active Substance: BIOTIN
  25. XOPENEX [Concomitant]
     Active Substance: LEVALBUTEROL HYDROCHLORIDE
  26. PROBIOTIC [Concomitant]
     Active Substance: PROBIOTICS NOS
  27. LUTERA [Concomitant]
     Active Substance: ETHINYL ESTRADIOL\LEVONORGESTREL
  28. GUAFENESIN [Concomitant]
     Active Substance: GUAIFENESIN
  29. VITAMIN C [Concomitant]
     Active Substance: ASCORBIC ACID
  30. SODIUM CHLORIDE. [Concomitant]
     Active Substance: SODIUM CHLORIDE
  31. MAXZIDE [Concomitant]
     Active Substance: HYDROCHLOROTHIAZIDE\TRIAMTERENE
  32. ASPIRIN. [Concomitant]
     Active Substance: ASPIRIN
  33. PRIVIGEN [Suspect]
     Active Substance: HUMAN IMMUNOGLOBULIN G
     Indication: IMMUNODEFICIENCY COMMON VARIABLE
     Route: 042
  34. SINGULAIR [Concomitant]
     Active Substance: MONTELUKAST SODIUM
  35. ASTELIN [Concomitant]
     Active Substance: AZELASTINE HYDROCHLORIDE
  36. SYMBICORT [Concomitant]
     Active Substance: BUDESONIDE\FORMOTEROL FUMARATE DIHYDRATE
  37. HYDROCODONE BITARTRATE AND ACETAMINOPHEN [Concomitant]
     Active Substance: ACETAMINOPHEN\HYDROCODONE BITARTRATE
  38. TUSSIONEX PENNKINETIC [Concomitant]
     Active Substance: CHLORPHENIRAMINE\HYDROCODONE
  39. VITAMIN D [Concomitant]
     Active Substance: CHOLECALCIFEROL

REACTIONS (1)
  - Sinusitis [Unknown]

NARRATIVE: CASE EVENT DATE: 201410
